FAERS Safety Report 8767282 (Version 1)
Quarter: 2012Q4

REPORT INFORMATION
  Report Type: 
  Country: CN (occurrence: CN)
  Receive Date: 20120904
  Receipt Date: 20120904
  Transmission Date: 20130627
  Serious: Yes (Hospitalization)
  Sender: FDA-Public Use
  Company Number: CN-GLAXOSMITHKLINE-B0826967A

PATIENT
  Age: 68 Year
  Sex: Male

DRUGS (3)
  1. SERETIDE (50MCG/250MCG) [Suspect]
     Indication: ASTHMA
     Dosage: 2PUFF Per day
     Route: 055
     Dates: start: 201203
  2. TIOTROPIUM [Concomitant]
     Dates: start: 201203
  3. SERMION [Concomitant]
     Dates: start: 201203

REACTIONS (1)
  - Oedema peripheral [Recovering/Resolving]
